FAERS Safety Report 8930375 (Version 1)
Quarter: 2012Q4

REPORT INFORMATION
  Report Type: 
  Country: GB (occurrence: GB)
  Receive Date: 20121128
  Receipt Date: 20121128
  Transmission Date: 20130627
  Serious: Yes (Hospitalization)
  Sender: FDA-Public Use
  Company Number: GB-GLAXOSMITHKLINE-B0846240A

PATIENT
  Age: 18 Year
  Sex: Male

DRUGS (3)
  1. SEROXAT [Suspect]
  2. OLANZAPINE [Concomitant]
  3. AMPHETAMINE [Concomitant]

REACTIONS (4)
  - Suicidal ideation [Unknown]
  - Nightmare [Unknown]
  - Violence-related symptom [Unknown]
  - Depressed mood [Unknown]
